FAERS Safety Report 6917183-1 (Version None)
Quarter: 2010Q3

REPORT INFORMATION
  Report Type: 
  Country: None (occurrence: None)
  Receive Date: 20100804
  Receipt Date: 20100729
  Transmission Date: 20110219
  Serious: Yes (Hospitalization)
  Sender: FDA-Public Use
  Company Number: 013219

PATIENT
  Sex: Female
  Weight: 62 kg

DRUGS (7)
  1. CERTOLIZUMAB PEGOL (CERTOLIZUMAB PEGOL) [Suspect]
     Dosage: (400 MG  1X/2 WEEKS, C87085 SUBCUTANEOUS), (200 MG  1X/2 WEEKS SUBCUTANEOUS), (SUBCUTANEOUS)
     Route: 058
     Dates: start: 20080703, end: 20100603
  2. DERMOL /01330701/ [Concomitant]
  3. LEMNIS HC [Concomitant]
  4. ACETAMINOPHEN [Concomitant]
  5. MULTI-VITAMINS [Concomitant]
  6. EVENING PRIMROSE OIL /01332402/ [Concomitant]
  7. BLACKMORES EXECUTIVE B STRESS FORMULA [Concomitant]

REACTIONS (26)
  - ABDOMINAL ABSCESS [None]
  - ABDOMINAL PAIN [None]
  - ANASTOMOTIC STENOSIS [None]
  - BLOOD ALBUMIN DECREASED [None]
  - BLOOD ALKALINE PHOSPHATASE INCREASED [None]
  - BLOOD POTASSIUM DECREASED [None]
  - BLOOD PRESSURE SYSTOLIC INCREASED [None]
  - BLOOD UREA DECREASED [None]
  - CHILLS [None]
  - CONDITION AGGRAVATED [None]
  - CROHN'S DISEASE [None]
  - FLUSHING [None]
  - GENERAL PHYSICAL HEALTH DETERIORATION [None]
  - HAEMOGLOBIN DECREASED [None]
  - HEART RATE INCREASED [None]
  - HYPERHIDROSIS [None]
  - INCISION SITE ERYTHEMA [None]
  - INTESTINAL FISTULA [None]
  - INTESTINAL ULCER [None]
  - LARGE INTESTINE PERFORATION [None]
  - PLATELET COUNT INCREASED [None]
  - PROCEDURAL HYPOTENSION [None]
  - PROCEDURAL NAUSEA [None]
  - PROTEIN TOTAL DECREASED [None]
  - RED BLOOD CELL COUNT DECREASED [None]
  - WOUND DEHISCENCE [None]
